FAERS Safety Report 14099936 (Version 1)
Quarter: 2017Q4

REPORT INFORMATION
  Report Type: Spontaneous
  Country: FR (occurrence: FR)
  Receive Date: 20171017
  Receipt Date: 20171017
  Transmission Date: 20180321
  Serious: Yes (Hospitalization)
  Sender: FDA-Public Use
  Company Number: FR-SA-2017SA195107

PATIENT
  Age: 83 Year
  Sex: Female

DRUGS (2)
  1. LOVENOX [Suspect]
     Active Substance: ENOXAPARIN SODIUM
     Indication: DEEP VEIN THROMBOSIS
     Route: 042
     Dates: start: 20170818, end: 20170908
  2. CEFUROXIME. [Suspect]
     Active Substance: CEFUROXIME
     Indication: ERYSIPELAS
     Route: 042
     Dates: start: 20170823

REACTIONS (3)
  - Erythema [Recovering/Resolving]
  - Toxic skin eruption [Recovered/Resolved]
  - Exfoliative rash [Recovering/Resolving]

NARRATIVE: CASE EVENT DATE: 20170828
